FAERS Safety Report 8032331-0 (Version None)
Quarter: 2011Q4

REPORT INFORMATION
  Report Type: 
  Country: None (occurrence: None)
  Receive Date: 20111201
  Receipt Date: 20110722
  Transmission Date: 20120403
  Serious: Yes (Hospitalization)
  Sender: FDA-Public Use
  Company Number: 20110722CINRY2140

PATIENT
  Age: 53 Year
  Sex: Male

DRUGS (2)
  1. CINRYZE [Suspect]
     Indication: HEREDITARY ANGIOEDEMA
     Dosage: (1000 IU, 2 IN 1 WK), INTRAVENOUS
     Route: 042
     Dates: start: 20110314
  2. CINRYZE [Suspect]
     Indication: PROPHYLAXIS
     Dosage: (1000 IU, 2 IN 1 WK), INTRAVENOUS
     Route: 042
     Dates: start: 20110314

REACTIONS (2)
  - SWOLLEN TONGUE [None]
  - HEREDITARY ANGIOEDEMA [None]
